FAERS Safety Report 23722359 (Version 1)
Quarter: 2024Q2

REPORT INFORMATION
  Report Type: Report from Study
  Country: US (occurrence: US)
  Receive Date: 20240409
  Receipt Date: 20240409
  Transmission Date: 20240716
  Serious: Yes (Other)
  Sender: FDA-Public Use
  Company Number: US-ABBVIE-5706797

PATIENT

DRUGS (3)
  1. BOTULINUM TOXIN TYPE A [Suspect]
     Active Substance: BOTULINUM TOXIN TYPE A
     Indication: Product used for unknown indication
     Dosage: UNK
     Route: 065
     Dates: start: 2021, end: 2021
  2. SUMATRIPTAN [Suspect]
     Active Substance: SUMATRIPTAN
     Indication: Product used for unknown indication
     Dosage: UNK
     Route: 065
  3. AJOVY [Concomitant]
     Active Substance: FREMANEZUMAB-VFRM
     Indication: Product used for unknown indication
     Dosage: UNK
     Route: 065

REACTIONS (5)
  - Medical device implantation [Unknown]
  - Drug hypersensitivity [Unknown]
  - Migraine [Not Recovered/Not Resolved]
  - Neck pain [Not Recovered/Not Resolved]
  - Occipital neuralgia [Not Recovered/Not Resolved]

NARRATIVE: CASE EVENT DATE: 20230101
